FAERS Safety Report 15251473 (Version 1)
Quarter: 2018Q3

REPORT INFORMATION
  Report Type: Spontaneous
  Country: US (occurrence: US)
  Receive Date: 20180717
  Receipt Date: 20180717
  Transmission Date: 20181010
  Serious: Yes (Hospitalization)
  Sender: FDA-Public Use
  Company Number: None

PATIENT
  Age: 73 Year
  Sex: Male

DRUGS (2)
  1. WARFARIN [Suspect]
     Active Substance: WARFARIN
     Indication: ATRIAL FIBRILLATION
     Route: 048
  2. CIPROFLOXACIN. [Suspect]
     Active Substance: CIPROFLOXACIN
     Route: 048
     Dates: start: 20171228, end: 20180102

REACTIONS (6)
  - International normalised ratio increased [None]
  - Nausea [None]
  - Chest pain [None]
  - Decreased appetite [None]
  - Vomiting projectile [None]
  - Abdominal pain [None]

NARRATIVE: CASE EVENT DATE: 20180102
